FAERS Safety Report 25477228 (Version 1)
Quarter: 2025Q2

REPORT INFORMATION
  Report Type: Spontaneous
  Country: GB (occurrence: GB)
  Receive Date: 20250625
  Receipt Date: 20250625
  Transmission Date: 20250717
  Serious: Yes (Disabling)
  Sender: ALEXION PHARMACEUTICALS
  Company Number: None

PATIENT
  Age: 81 Year
  Weight: 50 kg

DRUGS (3)
  1. DAPAGLIFLOZIN [Suspect]
     Active Substance: DAPAGLIFLOZIN
     Indication: Adverse drug reaction
     Route: 065
  2. ATORVASTATIN [Concomitant]
     Active Substance: ATORVASTATIN
     Route: 065
  3. LISINOPRIL [Concomitant]
     Active Substance: LISINOPRIL
     Route: 065

REACTIONS (1)
  - Peripheral swelling [Recovered/Resolved]
